FAERS Safety Report 6925531-1 (Version None)
Quarter: 2010Q3

REPORT INFORMATION
  Report Type: 
  Country: None (occurrence: None)
  Receive Date: 20100816
  Receipt Date: 20100806
  Transmission Date: 20110219
  Serious: Yes (Other)
  Sender: FDA-Public Use
  Company Number: US-ROCHE-719829

PATIENT
  Sex: Male
  Weight: 79.5 kg

DRUGS (2)
  1. ACCUTANE [Suspect]
     Indication: ACNE
     Dosage: FREQ: DAILY OR TWICE DAILY
     Route: 048
     Dates: start: 20000101, end: 20010101
  2. VITAMIN B-12 [Concomitant]

REACTIONS (7)
  - ABDOMINAL PAIN UPPER [None]
  - DIARRHOEA [None]
  - DYSPEPSIA [None]
  - GASTRIC DISORDER [None]
  - HAEMATEMESIS [None]
  - NEPHROLITHIASIS [None]
  - VITAMIN B12 DEFICIENCY [None]
